FAERS Safety Report 17900606 (Version 3)
Quarter: 2020Q3

REPORT INFORMATION
  Report Type: Spontaneous
  Country: SA (occurrence: SA)
  Receive Date: 20200616
  Receipt Date: 20200709
  Transmission Date: 20201103
  Serious: Yes (Hospitalization, Other)
  Sender: FDA-Public Use
  Company Number: SA-PFIZER INC-2020228838

PATIENT
  Age: 4 Year
  Sex: Female

DRUGS (2)
  1. VINCRISTINE SULFATE. [Suspect]
     Active Substance: VINCRISTINE SULFATE
     Indication: OPTIC GLIOMA
     Dosage: UNK
  2. CARBOPLATIN. [Suspect]
     Active Substance: CARBOPLATIN
     Indication: OPTIC GLIOMA
     Dosage: UNK

REACTIONS (5)
  - Tenosynovitis [Recovered/Resolved]
  - Viral pharyngitis [Recovered/Resolved]
  - Product use in unapproved indication [Unknown]
  - Trigger finger [Recovered/Resolved]
  - Off label use [Unknown]
